FAERS Safety Report 12549551 (Version 3)
Quarter: 2016Q3

REPORT INFORMATION
  Report Type: Spontaneous
  Country: BR (occurrence: BR)
  Receive Date: 20160712
  Receipt Date: 20160809
  Transmission Date: 20161109
  Serious: Yes (Other)
  Sender: FDA-Public Use
  Company Number: BR-PFIZER INC-2016337258

PATIENT
  Sex: Female

DRUGS (1)
  1. ADVIL [Suspect]
     Active Substance: IBUPROFEN
     Dosage: UNKNOWN

REACTIONS (7)
  - Choking [Unknown]
  - Intentional product misuse [Unknown]
  - Dysgeusia [Unknown]
  - Oral discomfort [Unknown]
  - Ageusia [Unknown]
  - Retching [Unknown]
  - Regurgitation [Unknown]
